FAERS Safety Report 19490860 (Version 2)
Quarter: 2023Q2

REPORT INFORMATION
  Report Type: Report from Study
  Country: US (occurrence: US)
  Receive Date: 20210705
  Receipt Date: 20230501
  Transmission Date: 20230722
  Serious: Yes (Other)
  Sender: FDA-Public Use
  Company Number: US-SA-2021SA214353

PATIENT
  Age: 66 Year
  Sex: Female

DRUGS (9)
  1. DUPILUMAB [Suspect]
     Active Substance: DUPILUMAB
     Indication: Dermatitis atopic
  2. CORTICOSTEROID NOS [Concomitant]
     Active Substance: CORTICOSTEROID NOS
     Indication: Dermatitis atopic
     Dosage: TOPICAL
  3. CORTICOSTEROID NOS [Concomitant]
     Active Substance: CORTICOSTEROID NOS
     Dosage: SYSTEMIC
  4. DAPSONE [Concomitant]
     Active Substance: DAPSONE
     Indication: Dermatitis atopic
  5. GABAPENTIN [Concomitant]
     Active Substance: GABAPENTIN
     Indication: Dermatitis atopic
  6. METHOTREXATE [Concomitant]
     Active Substance: METHOTREXATE
     Indication: Dermatitis atopic
  7. ADALIMUMAB [Concomitant]
     Active Substance: ADALIMUMAB
     Indication: Dermatitis atopic
  8. MYCOPHENOLATE MOFETIL [Concomitant]
     Active Substance: MYCOPHENOLATE MOFETIL
     Indication: Dermatitis atopic
  9. INTERFERON [Concomitant]
     Active Substance: INTERFERON
     Indication: Dermatitis atopic

REACTIONS (2)
  - Cutaneous T-cell lymphoma stage II [Unknown]
  - Lymphocytic infiltration [Unknown]
